FAERS Safety Report 13877281 (Version 1)
Quarter: 2017Q3

REPORT INFORMATION
  Report Type: Spontaneous
  Country: US (occurrence: US)
  Receive Date: 20170817
  Receipt Date: 20170817
  Transmission Date: 20171127
  Serious: Yes (Other)
  Sender: FDA-Public Use
  Company Number: US-DUCHESNAY INC.-2024746

PATIENT
  Age: 65 Year
  Sex: Female

DRUGS (1)
  1. OSPHENA [Suspect]
     Active Substance: OSPEMIFENE
     Indication: PRODUCT USED FOR UNKNOWN INDICATION
     Route: 048
     Dates: start: 20170512, end: 20170513

REACTIONS (4)
  - Hypersensitivity [Not Recovered/Not Resolved]
  - Rash pruritic [Not Recovered/Not Resolved]
  - Urticaria [Not Recovered/Not Resolved]
  - Burning sensation [Recovering/Resolving]

NARRATIVE: CASE EVENT DATE: 20170514
